FAERS Safety Report 23580410 (Version 2)
Quarter: 2024Q1

REPORT INFORMATION
  Report Type: Spontaneous
  Country: US (occurrence: US)
  Receive Date: 20240229
  Receipt Date: 20240328
  Transmission Date: 20240409
  Serious: No
  Sender: FDA-Public Use
  Company Number: US-VERTEX PHARMACEUTICALS-2024-003376

PATIENT

DRUGS (5)
  1. KALYDECO [Suspect]
     Active Substance: IVACAFTOR
     Indication: Cystic fibrosis
     Dosage: 150 MG
     Route: 048
  2. PULMOZYME [Suspect]
     Active Substance: DORNASE ALFA
     Indication: Product used for unknown indication
     Route: 065
  3. AZITHROMYCIN [Concomitant]
     Active Substance: AZITHROMYCIN
     Dosage: UNK
  4. MINOCYCLINE [Concomitant]
     Active Substance: MINOCYCLINE HYDROCHLORIDE
     Dosage: UNK
  5. CLOFAZIMINE [Concomitant]
     Active Substance: CLOFAZIMINE
     Dosage: UNK

REACTIONS (2)
  - Dyspnoea [Unknown]
  - Infective pulmonary exacerbation of cystic fibrosis [Unknown]
